FAERS Safety Report 7671817-5 (Version None)
Quarter: 2011Q3

REPORT INFORMATION
  Report Type: 
  Country: None (occurrence: None)
  Receive Date: 20110809
  Receipt Date: 20110803
  Transmission Date: 20111222
  Serious: Yes (Hospitalization, Other)
  Sender: FDA-Public Use
  Company Number: US-ABBOTT-11P-163-0844057-00

PATIENT
  Sex: Female
  Weight: 60.836 kg

DRUGS (9)
  1. DEXILANT [Concomitant]
     Indication: GASTROOESOPHAGEAL REFLUX DISEASE
  2. WELCHOL [Concomitant]
     Indication: PRODUCT USED FOR UNKNOWN INDICATION
  3. PREFEST [Concomitant]
     Indication: HORMONE REPLACEMENT THERAPY
     Dosage: ONE PILL DAILY
  4. NORVASC [Concomitant]
     Indication: HYPERTENSION
  5. HUMIRA [Suspect]
     Indication: CROHN'S DISEASE
     Dates: start: 20090101, end: 20110718
  6. QUINAPRIL HCL [Concomitant]
     Indication: HYPERTENSION
  7. HUMIRA [Suspect]
     Indication: FEMALE GENITAL TRACT FISTULA
  8. ZOLOFT [Concomitant]
     Indication: ANXIETY
  9. PENTASA [Concomitant]
     Indication: CROHN'S DISEASE

REACTIONS (4)
  - ABDOMINAL PAIN [None]
  - ABDOMINAL ADHESIONS [None]
  - RED BLOOD CELL COUNT DECREASED [None]
  - ABDOMINAL HERNIA [None]
